FAERS Safety Report 11538588 (Version 2)
Quarter: 2015Q4

REPORT INFORMATION
  Report Type: Spontaneous
  Country: JP (occurrence: JP)
  Receive Date: 20150922
  Receipt Date: 20151110
  Transmission Date: 20160304
  Serious: Yes (Hospitalization)
  Sender: FDA-Public Use
  Company Number: JP-009507513-1509JPN010389

PATIENT
  Age: 44 Year
  Sex: Female
  Weight: 41 kg

DRUGS (7)
  1. SYMBICORT [Suspect]
     Active Substance: BUDESONIDE\FORMOTEROL FUMARATE DIHYDRATE
     Indication: ASTHMA
     Dosage: 2 DF, BID
     Route: 055
     Dates: start: 20130216
  2. SINGULAIR [Suspect]
     Active Substance: MONTELUKAST SODIUM
     Indication: ASTHMA
     Dosage: 10 MG, QD
     Route: 048
     Dates: start: 20130216, end: 20130809
  3. TOLEDOMIN [Suspect]
     Active Substance: MILNACIPRAN HYDROCHLORIDE
     Indication: DEPRESSION
     Dosage: 50 MG, BID
     Route: 048
     Dates: start: 20100618
  4. LUNESTA [Suspect]
     Active Substance: ESZOPICLONE
     Indication: INSOMNIA
     Dosage: 2 MG, QD
     Route: 048
     Dates: start: 20130518
  5. FUZULEBAN [Suspect]
     Active Substance: AMBROXOL HYDROCHLORIDE
     Indication: ASTHMA
     Dosage: 30 MG, BID
     Route: 048
     Dates: start: 20101206, end: 20130720
  6. CALONAL [Suspect]
     Active Substance: ACETAMINOPHEN
     Indication: ANALGESIC THERAPY
     Dosage: DAILY DOSAGE UNKNOWN . AT TIMES OF PAIN
     Route: 048
     Dates: start: 20130518, end: 20130720
  7. MEKITACK [Suspect]
     Active Substance: TIZANIDINE HYDROCHLORIDE
     Indication: HYPOTONIA
     Dosage: DAILY DOSAGE UNKNOWN . AT TIMES OF PAIN
     Route: 048
     Dates: start: 20130518, end: 20130720

REACTIONS (2)
  - Hepatic function abnormal [Recovered/Resolved]
  - Rash [Recovered/Resolved]

NARRATIVE: CASE EVENT DATE: 20130810
